FAERS Safety Report 19639787 (Version 1)
Quarter: 2021Q3

REPORT INFORMATION
  Report Type: Spontaneous
  Country: US (occurrence: US)
  Receive Date: 20210730
  Receipt Date: 20210730
  Transmission Date: 20211014
  Serious: No
  Sender: FDA-Public Use
  Company Number: US-CELGENEUS-USA-20210705753

PATIENT
  Sex: Female
  Weight: 79.45 kg

DRUGS (15)
  1. DARZALEX [Concomitant]
     Active Substance: DARATUMUMAB
     Indication: PRODUCT USED FOR UNKNOWN INDICATION
     Dosage: 100 MG/5ML
     Route: 048
  2. POMALYST [Suspect]
     Active Substance: POMALIDOMIDE
     Route: 048
     Dates: start: 201601
  3. DEXAMETHASONE. [Concomitant]
     Active Substance: DEXAMETHASONE
     Indication: PRODUCT USED FOR UNKNOWN INDICATION
     Route: 048
  4. POMALYST [Suspect]
     Active Substance: POMALIDOMIDE
     Indication: PLASMA CELL MYELOMA
     Dosage: 2 MILLIGRAM
     Route: 048
     Dates: start: 201508
  5. POMALYST [Suspect]
     Active Substance: POMALIDOMIDE
     Dosage: 4MG?2MG
     Route: 048
     Dates: start: 201807
  6. POMALYST [Suspect]
     Active Substance: POMALIDOMIDE
     Dosage: 2 MILLIGRAM
     Route: 048
     Dates: start: 202107
  7. POMALYST [Suspect]
     Active Substance: POMALIDOMIDE
     Dosage: 2MG?4MG
     Route: 048
     Dates: start: 202103
  8. VALACYCLOVIR [Concomitant]
     Active Substance: VALACYCLOVIR HYDROCHLORIDE
     Indication: PRODUCT USED FOR UNKNOWN INDICATION
     Route: 048
  9. POMALYST [Suspect]
     Active Substance: POMALIDOMIDE
     Dosage: 4?2MG
     Route: 048
     Dates: start: 201510
  10. POMALYST [Suspect]
     Active Substance: POMALIDOMIDE
     Dosage: 4MG?2MG
     Route: 048
     Dates: start: 202012
  11. MAGNESIUM OXIDE. [Concomitant]
     Active Substance: MAGNESIUM OXIDE
     Indication: PRODUCT USED FOR UNKNOWN INDICATION
     Route: 048
  12. CEFUROXIME. [Concomitant]
     Active Substance: CEFUROXIME
     Indication: PRODUCT USED FOR UNKNOWN INDICATION
     Route: 048
  13. BENZONATATE. [Concomitant]
     Active Substance: BENZONATATE
     Indication: PRODUCT USED FOR UNKNOWN INDICATION
     Route: 048
  14. ALENDRONATE SODIUM. [Concomitant]
     Active Substance: ALENDRONATE SODIUM
     Indication: PRODUCT USED FOR UNKNOWN INDICATION
     Route: 048
  15. TYLENOL [Concomitant]
     Active Substance: ACETAMINOPHEN
     Indication: PRODUCT USED FOR UNKNOWN INDICATION
     Route: 048

REACTIONS (1)
  - Infection [Unknown]
